FAERS Safety Report 14653775 (Version 1)
Quarter: 2018Q1

REPORT INFORMATION
  Report Type: Spontaneous
  Country: US (occurrence: US)
  Receive Date: 20180316
  Receipt Date: 20180316
  Transmission Date: 20180509
  Serious: Yes (Disabling)
  Sender: FDA-Public Use
  Company Number: None

PATIENT
  Age: 49 Year
  Sex: Female
  Weight: 54.9 kg

DRUGS (7)
  1. TOPIRAMATE. [Suspect]
     Active Substance: TOPIRAMATE
     Indication: MIGRAINE
     Dosage: ?          QUANTITY:1 TABLET(S);?
     Route: 048
     Dates: start: 20090901, end: 20180201
  2. MULTIVITAMIN [Concomitant]
     Active Substance: VITAMINS
  3. LEVOTHYROXIN [Concomitant]
     Active Substance: LEVOTHYROXINE
  4. IRON [Concomitant]
     Active Substance: IRON
  5. LAMOTRIGINE. [Concomitant]
     Active Substance: LAMOTRIGINE
  6. CLONAZEPAM. [Concomitant]
     Active Substance: CLONAZEPAM
  7. BUPROPRION [Concomitant]
     Active Substance: BUPROPION

REACTIONS (8)
  - Disturbance in attention [None]
  - Balance disorder [None]
  - Emotional distress [None]
  - Memory impairment [None]
  - Panic reaction [None]
  - Quality of life decreased [None]
  - Confusional state [None]
  - Fear [None]

NARRATIVE: CASE EVENT DATE: 20120901
